FAERS Safety Report 9120565 (Version 2)
Quarter: 2013Q1

REPORT INFORMATION
  Report Type: Spontaneous
  Country: JP (occurrence: JP)
  Receive Date: 20130226
  Receipt Date: 20130329
  Transmission Date: 20140127
  Serious: No
  Sender: FDA-Public Use
  Company Number: JP-OTSUKA-JP-2013-10445

PATIENT
  Age: 87 Year
  Sex: Male

DRUGS (6)
  1. SAMSCA [Suspect]
     Indication: CARDIAC FAILURE CONGESTIVE
     Dosage: 7.5 MG MILLIGRAM(S), QD
     Route: 048
     Dates: start: 20130129, end: 20130205
  2. MAINTATE [Concomitant]
     Dosage: 2.5 MG MILLIGRAM(S), QD
     Route: 048
  3. BAYASPIRIN [Concomitant]
     Dosage: 100 MG MILLIGRAM(S), QD
     Route: 048
  4. LASIX [Concomitant]
     Dosage: 40 MG MILLIGRAM(S), QD
     Route: 065
  5. ALDACTONE A [Concomitant]
     Dosage: 25 MG MILLIGRAM(S), QD
     Route: 048
  6. LANIRAPID [Concomitant]
     Dosage: 0.2 MG MILLIGRAM(S), QD
     Route: 048

REACTIONS (1)
  - Rash [Recovered/Resolved]
